FAERS Safety Report 17243911 (Version 9)
Quarter: 2020Q3

REPORT INFORMATION
  Report Type: Report from Study
  Country: IL (occurrence: IL)
  Receive Date: 20200107
  Receipt Date: 20200904
  Transmission Date: 20201102
  Serious: Yes (Hospitalization)
  Sender: FDA-Public Use
  Company Number: IL-EISAI MEDICAL RESEARCH-EC-2020-068136

PATIENT
  Age: 73 Year
  Sex: Female
  Weight: 75.1 kg

DRUGS (13)
  1. PEMBROLIZUMAB. [Suspect]
     Active Substance: PEMBROLIZUMAB
     Route: 041
     Dates: start: 20200609
  2. PEMBROLIZUMAB. [Suspect]
     Active Substance: PEMBROLIZUMAB
     Route: 041
     Dates: start: 20200107, end: 20200519
  3. PEMBROLIZUMAB. [Suspect]
     Active Substance: PEMBROLIZUMAB
     Indication: ENDOMETRIAL CANCER
     Route: 041
     Dates: start: 20191124, end: 20191124
  4. SLOW?K [Concomitant]
     Active Substance: POTASSIUM CHLORIDE
     Dates: start: 20190719, end: 20200217
  5. AMLODIPINE [Concomitant]
     Active Substance: AMLODIPINE BESYLATE
     Dates: start: 20190719, end: 20200107
  6. VABEN [Concomitant]
     Active Substance: OXAZEPAM
     Dates: start: 20060117
  7. LENVATINIB [Suspect]
     Active Substance: LENVATINIB
     Indication: ENDOMETRIAL CANCER
     Route: 048
     Dates: start: 20191124, end: 20191228
  8. LENVATINIB [Suspect]
     Active Substance: LENVATINIB
     Dosage: STARTING AT 14 MILLIGRAM, FLUCTUATED DOSAGE
     Route: 048
     Dates: start: 20200107
  9. PEMBROLIZUMAB. [Suspect]
     Active Substance: PEMBROLIZUMAB
     Route: 041
     Dates: start: 20191215, end: 20191215
  10. BONDORMIN [Concomitant]
     Active Substance: BROTIZOLAM
     Dosage: 0.25
     Dates: start: 20060117
  11. CADEX [Concomitant]
     Dates: start: 20100708, end: 20200107
  12. ALDACTONE [Concomitant]
     Active Substance: SPIRONOLACTONE
     Dates: start: 20131107
  13. ELTROXIN [Concomitant]
     Active Substance: LEVOTHYROXINE
     Dates: start: 20191211, end: 20191229

REACTIONS (1)
  - Cholecystitis [Recovered/Resolved]

NARRATIVE: CASE EVENT DATE: 20191229
